FAERS Safety Report 8790034 (Version 4)
Quarter: 2013Q2

REPORT INFORMATION
  Report Type: Report from Study
  Country: JP (occurrence: JP)
  Receive Date: 20120917
  Receipt Date: 20130531
  Transmission Date: 20140414
  Serious: Yes (Other)
  Sender: FDA-Public Use
  Company Number: JP-VERTEX PHARMACEUTICAL INC.-2012-021005

PATIENT
  Age: 53 Year
  Sex: Male

DRUGS (8)
  1. VX-950 (TELAPREVIR) [Suspect]
     Indication: CHRONIC HEPATITIS C
     Dosage: 1500 MG, QD
     Route: 048
     Dates: start: 20120718, end: 20121011
  2. RIBAVIRIN [Suspect]
     Indication: CHRONIC HEPATITIS C
     Dosage: 800 MG, QD
     Route: 048
     Dates: start: 20120718
  3. PEGINTERFERON ALFA-2B [Suspect]
     Indication: CHRONIC HEPATITIS C
     Dosage: 0.43 ?G/KG, QW
     Route: 058
     Dates: start: 20120718, end: 20120904
  4. PEGINTERFERON ALFA-2B [Suspect]
     Dosage: 0.61 ?G/KG, QW
     Route: 058
     Dates: start: 20120905
  5. BARACLUDE [Concomitant]
     Dosage: 0.5 MG, QD
     Route: 048
     Dates: start: 20120718
  6. LOXONIN [Concomitant]
     Dosage: 60 MG, PRN
     Route: 048
     Dates: start: 20120719
  7. MUCOSTA [Concomitant]
     Dosage: 100 MG, PRN
     Route: 048
     Dates: start: 20120719
  8. MOHRUS L [Concomitant]
     Dosage: 1 SHEET/DAY
     Route: 062
     Dates: start: 20120729

REACTIONS (2)
  - Neutrophil count decreased [Recovered/Resolved]
  - Off label use [Unknown]
